FAERS Safety Report 7428062-8 (Version None)
Quarter: 2011Q2

REPORT INFORMATION
  Report Type: 
  Country: None (occurrence: None)
  Receive Date: 20110421
  Receipt Date: 20110413
  Transmission Date: 20111010
  Serious: Yes (Hospitalization)
  Sender: FDA-Public Use
  Company Number: US-BIOGENIDEC-2011BI013956

PATIENT
  Age: 47 Year
  Sex: Female

DRUGS (2)
  1. AVONEX [Suspect]
     Indication: MULTIPLE SCLEROSIS
     Route: 030
     Dates: start: 20091002
  2. AVONEX [Suspect]
     Route: 030
     Dates: start: 20100801, end: 20110201

REACTIONS (5)
  - HYSTERECTOMY [None]
  - PROCEDURAL COMPLICATION [None]
  - VIRAL INFECTION [None]
  - GASTRIC BYPASS [None]
  - CHOLECYSTECTOMY [None]
